FAERS Safety Report 13465397 (Version 1)
Quarter: 2017Q2

REPORT INFORMATION
  Report Type: Spontaneous
  Country: US (occurrence: US)
  Receive Date: 20170421
  Receipt Date: 20170421
  Transmission Date: 20170830
  Serious: Yes (Other)
  Sender: FDA-Public Use
  Company Number: US-TEVA-709741USA

PATIENT

DRUGS (1)
  1. LEVALBUTEROL. [Suspect]
     Active Substance: LEVALBUTEROL
     Indication: ASTHMA
     Dosage: 0.63 MG/3ML

REACTIONS (8)
  - Drug ineffective [Unknown]
  - Adverse reaction [Unknown]
  - Throat tightness [Unknown]
  - Oropharyngeal pain [Unknown]
  - Hypopnoea [Unknown]
  - Lung disorder [Unknown]
  - Cough [Unknown]
  - Product substitution [Unknown]
